APPROVED DRUG PRODUCT: ALLOPURINOL
Active Ingredient: ALLOPURINOL
Strength: 300MG
Dosage Form/Route: TABLET;ORAL
Application: A070269 | Product #001
Applicant: SANDOZ INC
Approved: Dec 31, 1985 | RLD: No | RS: No | Type: DISCN